FAERS Safety Report 9971533 (Version 1)
Quarter: 2014Q1

REPORT INFORMATION
  Report Type: Report from Study
  Country: US (occurrence: US)
  Receive Date: 20140306
  Receipt Date: 20140306
  Transmission Date: 20141002
  Serious: No
  Sender: FDA-Public Use
  Company Number: US-ABBVIE-13P-163-1150401-00

PATIENT
  Age: 53 Year
  Sex: Female

DRUGS (5)
  1. HUMIRA [Suspect]
     Indication: CROHN^S DISEASE
  2. HUMIRA [Suspect]
     Dates: start: 20130909
  3. HUMIRA [Suspect]
     Dates: start: 20130920
  4. PREDNISONE [Concomitant]
     Indication: CROHN^S DISEASE
     Route: 048
  5. SYNTHROID [Concomitant]
     Indication: AUTOIMMUNE THYROIDITIS

REACTIONS (2)
  - Inappropriate schedule of drug administration [Not Recovered/Not Resolved]
  - Injection site bruising [Not Recovered/Not Resolved]
